FAERS Safety Report 8885978 (Version 1)
Quarter: 2012Q4

REPORT INFORMATION
  Report Type: 
  Country: US (occurrence: US)
  Receive Date: 20121105
  Receipt Date: 20121105
  Transmission Date: 20130627
  Serious: No
  Sender: FDA-Public Use
  Company Number: US-BAYER-2012-114756

PATIENT

DRUGS (1)
  1. ALEVE CAPLET/TABLET,MIDOL EXTENDED RELIEF CAPLET [Suspect]
     Indication: HEADACHE
     Dosage: 2 UNK, UNK

REACTIONS (7)
  - Swelling [None]
  - Pruritus generalised [None]
  - Oedema peripheral [None]
  - Hypersensitivity [None]
  - Swelling [None]
  - Pruritus generalised [None]
  - Oedema peripheral [None]
